FAERS Safety Report 5331304-6 (Version None)
Quarter: 2007Q2

REPORT INFORMATION
  Report Type: 
  Country: None (occurrence: None)
  Receive Date: 20070301
  Receipt Date: 20060607
  Transmission Date: 20071010
  Serious: Yes (Other)
  Sender: FDA-Public Use
  Company Number: 2623

PATIENT
  Age: 15 Year
  Sex: Female
  Weight: 56.6996 kg

DRUGS (3)
  1. AMNESTEEM [Suspect]
     Indication: ACNE
     Dosage: 20 MG QD PO
     Route: 048
     Dates: start: 20050816, end: 20050926
  2. AMNESTEEM [Suspect]
     Dosage: 40 MG QD : 40 MG  BID: PO
     Route: 048
     Dates: start: 20050926, end: 20051222
  3. AMNESTEEM [Suspect]
     Dosage: 40 MG QD : 40 MG  BID: PO
     Route: 048
     Dates: start: 20051222, end: 20060402

REACTIONS (1)
  - XEROSIS [None]
